FAERS Safety Report 8875038 (Version 1)
Quarter: 2012Q4

REPORT INFORMATION
  Report Type: 
  Country: US (occurrence: US)
  Receive Date: 20121026
  Receipt Date: 20121026
  Transmission Date: 20130627
  Serious: No
  Sender: FDA-Public Use
  Company Number: US-ASTRAZENECA-2012SE01749

PATIENT
  Age: 66 Year
  Sex: Female

DRUGS (3)
  1. RHINOCORT AQUA [Suspect]
     Route: 045
  2. TOPROL XL [Suspect]
     Route: 048
  3. CRESTOR [Suspect]
     Route: 048

REACTIONS (3)
  - Sedation [Unknown]
  - Pulmonary congestion [Unknown]
  - Drug ineffective [Unknown]
